FAERS Safety Report 10035916 (Version 1)
Quarter: 2014Q1

REPORT INFORMATION
  Report Type: Report from Study
  Country: CA (occurrence: CA)
  Receive Date: 20140325
  Receipt Date: 20140325
  Transmission Date: 20141002
  Serious: Yes (Other)
  Sender: FDA-Public Use
  Company Number: CA-BRISTOL-MYERS SQUIBB COMPANY-20547956

PATIENT
  Age: 43 Year
  Sex: Female

DRUGS (4)
  1. ABATACEPT SUBQ INJECTION 125MG/ML [Suspect]
     Indication: RHEUMATOID ARTHRITIS
     Dosage: 1DF: 125 UNITS NOS
     Route: 058
     Dates: start: 201401
  2. PREDNISONE [Concomitant]
  3. CELEBREX [Concomitant]
  4. DEMEROL [Concomitant]

REACTIONS (4)
  - Cyst [Unknown]
  - Tooth fracture [Not Recovered/Not Resolved]
  - Hypertension [Unknown]
  - Tooth infection [Unknown]
